FAERS Safety Report 5134422-0 (Version None)
Quarter: 2006Q4

REPORT INFORMATION
  Report Type: 
  Country: None (occurrence: None)
  Receive Date: 20061023
  Receipt Date: 20061023
  Transmission Date: 20070319
  Serious: Yes (Life-Threatening)
  Sender: FDA-Public Use
  Company Number: None

PATIENT
  Age: 17 Year
  Sex: Female
  Weight: 47.6277 kg

DRUGS (2)
  1. OXYCONTIN [Suspect]
     Indication: DEPENDENCE
     Dosage: 2  ^80 ^ ^S^ DAILY NASAL
     Route: 045
     Dates: start: 20060501, end: 20061023
  2. OXYCONTIN [Suspect]
     Indication: DEPENDENCE
     Dosage: 01 DAILY NASAL
     Route: 045
     Dates: start: 20060501, end: 20061023

REACTIONS (4)
  - ABNORMAL BEHAVIOUR [None]
  - CACHEXIA [None]
  - DRUG DEPENDENCE [None]
  - WEIGHT DECREASED [None]
